FAERS Safety Report 14343365 (Version 1)
Quarter: 2018Q1

REPORT INFORMATION
  Report Type: Spontaneous
  Country: US (occurrence: US)
  Receive Date: 20180101
  Receipt Date: 20180101
  Transmission Date: 20180509
  Serious: Yes (Disabling)
  Sender: FDA-Public Use
  Company Number: None

PATIENT
  Sex: Male
  Weight: 21.6 kg

DRUGS (4)
  1. ZYRTEC RHINOCOURT [Concomitant]
  2. MONTELUKAST [Suspect]
     Active Substance: MONTELUKAST SODIUM
     Indication: ASTHMA
     Dosage: ?          QUANTITY:30 TABLET(S);?
     Route: 048
     Dates: start: 20160115, end: 20171228
  3. ABLUTEROL [Concomitant]
  4. JUICE PLUS SUPPLEMENTS [Concomitant]

REACTIONS (2)
  - Tic [None]
  - Attention deficit/hyperactivity disorder [None]

NARRATIVE: CASE EVENT DATE: 20170807
